FAERS Safety Report 6247595-3 (Version None)
Quarter: 2009Q2

REPORT INFORMATION
  Report Type: 
  Country: None (occurrence: None)
  Receive Date: 20090626
  Receipt Date: 20090622
  Transmission Date: 20091009
  Serious: Yes (Disabling)
  Sender: FDA-Public Use
  Company Number: US-MERCK-0905USA03629

PATIENT
  Age: 62 Year
  Sex: Female

DRUGS (4)
  1. FOSAMAX PLUS D [Suspect]
     Indication: OSTEOPENIA
     Route: 048
     Dates: start: 20070101, end: 20090518
  2. FOSAMAX PLUS D [Suspect]
     Route: 048
     Dates: start: 20090525
  3. FLONASE [Concomitant]
     Route: 065
  4. PREMARIN [Concomitant]
     Route: 067

REACTIONS (4)
  - ABDOMINAL DISCOMFORT [None]
  - CHEST DISCOMFORT [None]
  - NAUSEA [None]
  - VOMITING [None]
